FAERS Safety Report 6273326-7 (Version None)
Quarter: 2009Q3

REPORT INFORMATION
  Report Type: 
  Country: None (occurrence: None)
  Receive Date: 20090720
  Receipt Date: 20090709
  Transmission Date: 20100115
  Serious: Yes (Hospitalization)
  Sender: FDA-Public Use
  Company Number: FR-BAYER-200925355GPV

PATIENT
  Age: 94 Year
  Sex: Female

DRUGS (7)
  1. CIFLOX [Suspect]
     Indication: CHOLECYSTITIS ACUTE
     Dosage: UNIT DOSE: 500 MG
     Route: 048
     Dates: start: 20090528, end: 20090606
  2. AUGMENTIN [Suspect]
     Indication: CHOLECYSTITIS ACUTE
     Dosage: UNIT DOSE: 1 G
     Route: 048
     Dates: start: 20090528, end: 20090606
  3. PREVISCAN [Concomitant]
     Indication: ATRIAL FIBRILLATION
     Dosage: 1/2 TABLET ON PAIR DAYS AND 1/4 TABLET ON IMPAIR DAYS
     Route: 048
  4. HEMIGOXINE [Concomitant]
     Indication: ATRIAL FIBRILLATION
     Route: 048
  5. NICARDIPINE HCL [Concomitant]
     Indication: DRUG USE FOR UNKNOWN INDICATION
     Route: 048
  6. XANAX [Concomitant]
     Indication: DRUG USE FOR UNKNOWN INDICATION
     Route: 048
  7. CITALOPRAM HYDROBROMIDE [Concomitant]
     Indication: DRUG USE FOR UNKNOWN INDICATION
     Dosage: 1/2 TABLET IN THE MORNING
     Route: 048

REACTIONS (1)
  - ACUTE GENERALISED EXANTHEMATOUS PUSTULOSIS [None]
